FAERS Safety Report 5312487-0 (Version None)
Quarter: 2007Q2

REPORT INFORMATION
  Report Type: 
  Country: None (occurrence: None)
  Receive Date: 20070430
  Receipt Date: 20061229
  Transmission Date: 20071010
  Serious: No
  Sender: FDA-Public Use
  Company Number: 2006UW28674

PATIENT
  Age: 85 Year
  Sex: Female

DRUGS (4)
  1. NEXIUM [Suspect]
     Route: 048
     Dates: start: 20061101
  2. SOTALOL HYDROCHLORIDE [Concomitant]
  3. EVISTA [Concomitant]
  4. MAGNESIUM SULFATE [Concomitant]

REACTIONS (1)
  - OEDEMA PERIPHERAL [None]
